FAERS Safety Report 9646284 (Version 2)
Quarter: 2015Q4

REPORT INFORMATION
  Report Type: Report from Study
  Country: US (occurrence: US)
  Receive Date: 20131025
  Receipt Date: 20151015
  Transmission Date: 20160305
  Serious: Yes (Hospitalization)
  Sender: FDA-Public Use
  Company Number: US-ROCHE-1294130

PATIENT
  Sex: Female

DRUGS (35)
  1. CYMBALTA [Concomitant]
     Active Substance: DULOXETINE HYDROCHLORIDE
  2. OXYCODON [Concomitant]
     Active Substance: OXYCODONE
     Indication: PAIN
     Route: 065
  3. LASIX [Concomitant]
     Active Substance: FUROSEMIDE
  4. CULTURELLE [Concomitant]
     Active Substance: LACTOBACILLUS RHAMNOSUS
  5. SINGULAIR [Concomitant]
     Active Substance: MONTELUKAST SODIUM
  6. OXYGEN. [Concomitant]
     Active Substance: OXYGEN
     Route: 065
  7. VITAMIN C [Concomitant]
     Active Substance: ASCORBIC ACID
  8. FOLIC ACID. [Concomitant]
     Active Substance: FOLIC ACID
  9. ASTELIN (UNITED STATES) [Concomitant]
  10. HUMALOG MIX75/25 [Concomitant]
     Active Substance: INSULIN LISPRO
     Indication: DIABETES MELLITUS
  11. ASMANEX [Concomitant]
     Active Substance: MOMETASONE FUROATE
  12. LORAZEPAM. [Concomitant]
     Active Substance: LORAZEPAM
  13. PROVIGIL [Concomitant]
     Active Substance: MODAFINIL
  14. OXYTROL [Concomitant]
     Active Substance: OXYBUTYNIN
  15. XOLAIR [Suspect]
     Active Substance: OMALIZUMAB
     Route: 058
     Dates: start: 2007, end: 2010
  16. CLONIDINE. [Concomitant]
     Active Substance: CLONIDINE
  17. NEXIUM [Concomitant]
     Active Substance: ESOMEPRAZOLE MAGNESIUM
  18. L-LYSINE [Concomitant]
     Active Substance: LYSINE
  19. NASONEX [Concomitant]
     Active Substance: MOMETASONE FUROATE
  20. FOLATE [Concomitant]
     Active Substance: FOLATE SODIUM
  21. AMBIEN [Concomitant]
     Active Substance: ZOLPIDEM TARTRATE
  22. VITAMIN E [Concomitant]
     Active Substance: .ALPHA.-TOCOPHEROL
  23. CRESTOR [Concomitant]
     Active Substance: ROSUVASTATIN CALCIUM
     Route: 065
  24. PRILOSEC [Concomitant]
     Active Substance: OMEPRAZOLE MAGNESIUM
  25. BLACK COHOSH [Concomitant]
     Active Substance: BLACK COHOSH
  26. VITAMIN B12 [Concomitant]
     Active Substance: CYANOCOBALAMIN
     Route: 065
  27. MELATONIN [Concomitant]
     Active Substance: MELATONIN
     Route: 065
  28. XOPENEX [Concomitant]
     Active Substance: LEVALBUTEROL HYDROCHLORIDE
     Indication: ASTHMA
  29. XARELTO [Concomitant]
     Active Substance: RIVAROXABAN
     Indication: ANTICOAGULANT THERAPY
  30. XOLAIR [Suspect]
     Active Substance: OMALIZUMAB
     Indication: ASTHMA
     Route: 058
  31. SOMA [Concomitant]
     Active Substance: CARISOPRODOL
  32. CARDIZEM [Concomitant]
     Active Substance: DILTIAZEM HYDROCHLORIDE
  33. NEURONTIN [Concomitant]
     Active Substance: GABAPENTIN
     Indication: NEUROPATHY PERIPHERAL
  34. DURAGESIC [Concomitant]
     Active Substance: FENTANYL
  35. EPIPEN [Concomitant]
     Active Substance: EPINEPHRINE

REACTIONS (5)
  - Fall [Unknown]
  - Nasopharyngitis [Not Recovered/Not Resolved]
  - Foot deformity [Recovering/Resolving]
  - Rhinorrhoea [Not Recovered/Not Resolved]
  - Neuropathy peripheral [Not Recovered/Not Resolved]
